FAERS Safety Report 16780545 (Version 1)
Quarter: 2019Q3

REPORT INFORMATION
  Report Type: Spontaneous
  Country: FR (occurrence: FR)
  Receive Date: 20190906
  Receipt Date: 20190906
  Transmission Date: 20191005
  Serious: Yes (Hospitalization)
  Sender: FDA-Public Use
  Company Number: FR-ELI_LILLY_AND_COMPANY-16709958

PATIENT
  Sex: Female
  Weight: 46 kg

DRUGS (5)
  1. FLUOROURACILE WINTHROP [Suspect]
     Active Substance: FLUOROURACIL
     Dosage: 2400 MG/M2, CYCLICAL
     Route: 042
     Dates: start: 20120322, end: 20120504
  2. ERBITUX [Suspect]
     Active Substance: CETUXIMAB
     Indication: COLORECTAL CANCER
     Dosage: 500 MG/M2, QCYCLE
     Route: 042
     Dates: start: 20120322, end: 20120504
  3. FLUOROURACILE WINTHROP [Suspect]
     Active Substance: FLUOROURACIL
     Indication: COLORECTAL CANCER
     Dosage: DAY 1 BOLUS, DAY  1 AND 2, 2 DAYS WITH INFUSOR
     Route: 042
     Dates: start: 20120322, end: 20120504
  4. LEVOFOLINATE CALCIUM [Suspect]
     Active Substance: LEVOLEUCOVORIN CALCIUM
     Indication: COLORECTAL CANCER
     Dosage: 175MG  POWDER FOR SOLN FOR INJ
     Route: 042
     Dates: start: 20120322, end: 20120504
  5. OXALIPLATIN TEVA [Suspect]
     Active Substance: OXALIPLATIN
     Indication: COLORECTAL CANCER
     Dosage: 85 MG/M2, QCYCLE
     Route: 042
     Dates: start: 20120322, end: 20120504

REACTIONS (1)
  - Haematuria [Recovered/Resolved]

NARRATIVE: CASE EVENT DATE: 20120513
